FAERS Safety Report 20896117 (Version 1)
Quarter: 2022Q2

REPORT INFORMATION
  Report Type: Spontaneous
  Country: US (occurrence: None)
  Receive Date: 20220531
  Receipt Date: 20220531
  Transmission Date: 20220721
  Serious: Yes (Hospitalization)
  Sender: FDA-Public Use
  Company Number: None

PATIENT
  Sex: Male

DRUGS (5)
  1. IMATINIB MESYLATE [Suspect]
     Active Substance: IMATINIB MESYLATE
  2. IBUPROFEN [Concomitant]
     Active Substance: IBUPROFEN
  3. MULTI VITAMI [Concomitant]
  4. OSTEO BI-FLX TAB DBL ST [Concomitant]
  5. VITAMIN D CAP [Concomitant]

REACTIONS (2)
  - COVID-19 [None]
  - Pulmonary function test decreased [None]
